FAERS Safety Report 26040694 (Version 1)
Quarter: 2025Q4

REPORT INFORMATION
  Report Type: Report from Study
  Country: CN (occurrence: CN)
  Receive Date: 20251113
  Receipt Date: 20251113
  Transmission Date: 20260117
  Serious: Yes (Life-Threatening, Hospitalization, Other)
  Sender: MERZ
  Company Number: CN-MRZWEB-2025110000059

PATIENT

DRUGS (1)
  1. BOTULINUM TOXIN TYPE A [Suspect]
     Active Substance: BOTULINUM TOXIN TYPE A
     Indication: Skin cosmetic procedure
     Dates: start: 20210506, end: 20210506

REACTIONS (5)
  - Respiratory failure [Recovered/Resolved]
  - Bacterial infection [Recovered/Resolved]
  - Acinetobacter infection [Recovered/Resolved]
  - Botulism [Recovering/Resolving]
  - Pneumonia aspiration [Recovered/Resolved]

NARRATIVE: CASE EVENT DATE: 20210101
